FAERS Safety Report 7444622-2 (Version None)
Quarter: 2011Q2

REPORT INFORMATION
  Report Type: 
  Country: None (occurrence: None)
  Receive Date: 20110429
  Receipt Date: 20110426
  Transmission Date: 20111010
  Serious: No
  Sender: FDA-Public Use
  Company Number: US-PFIZER INC-2011091168

PATIENT
  Sex: Female
  Weight: 42.177 kg

DRUGS (1)
  1. GENOTROPIN [Suspect]
     Indication: BLOOD GROWTH HORMONE
     Dosage: UNK
     Route: 058
     Dates: start: 20110423

REACTIONS (4)
  - FATIGUE [None]
  - FEELING HOT [None]
  - ABDOMINAL PAIN UPPER [None]
  - HEADACHE [None]
